FAERS Safety Report 10334590 (Version 2)
Quarter: 2014Q3

REPORT INFORMATION
  Report Type: Spontaneous
  Country: US (occurrence: US)
  Receive Date: 20140723
  Receipt Date: 20140723
  Transmission Date: 20150326
  Serious: No
  Sender: FDA-Public Use
  Company Number: US-UNITED THERAPEUTICS-UTC-045610

PATIENT
  Age: 57 Year
  Sex: Female
  Weight: 71.44 kg

DRUGS (3)
  1. REMODULIN [Suspect]
     Active Substance: TREPROSTINIL
     Dosage: 0.052 UG/KG/MIN
     Route: 058
     Dates: start: 20131030
  2. ADCIRCA [Concomitant]
     Active Substance: TADALAFIL
  3. REMODULIN [Suspect]
     Active Substance: TREPROSTINIL

REACTIONS (10)
  - Infusion site swelling [Unknown]
  - Influenza like illness [Unknown]
  - Infusion site infection [Unknown]
  - Infusion site pain [Unknown]
  - Infusion site haemorrhage [Unknown]
  - Diarrhoea [Unknown]
  - Infusion site induration [Unknown]
  - Migraine [Unknown]
  - Dizziness [Unknown]
  - Catheter removal [Unknown]

NARRATIVE: CASE EVENT DATE: 20140312
